FAERS Safety Report 11276956 (Version 1)
Quarter: 2015Q3

REPORT INFORMATION
  Report Type: Report from Study
  Country: US (occurrence: BG)
  Receive Date: 20150716
  Receipt Date: 20150716
  Transmission Date: 20151125
  Serious: Yes (Other)
  Sender: FDA-Public Use
  Company Number: BG-FRI-1000078259

PATIENT
  Age: 63 Year
  Sex: Female
  Weight: 58 kg

DRUGS (1)
  1. ROFLUMILAST [Suspect]
     Active Substance: ROFLUMILAST
     Indication: CHRONIC OBSTRUCTIVE PULMONARY DISEASE
     Dosage: 500 MCG
     Route: 048
     Dates: start: 20140410, end: 20140618

REACTIONS (8)
  - Abdominal pain [Unknown]
  - Insomnia [Unknown]
  - Dyspnoea [Unknown]
  - Diarrhoea [Unknown]
  - Anxiety [Unknown]
  - Chest discomfort [Unknown]
  - Dermatitis allergic [Unknown]
  - Weight decreased [Unknown]
